FAERS Safety Report 11224716 (Version 2)
Quarter: 2015Q3

REPORT INFORMATION
  Report Type: Spontaneous
  Country: US (occurrence: US)
  Receive Date: 20150629
  Receipt Date: 20150723
  Transmission Date: 20151125
  Serious: No
  Sender: FDA-Public Use
  Company Number: US-PFIZER INC-2015211188

PATIENT
  Age: 29 Year
  Sex: Male

DRUGS (3)
  1. OXYCODONE [Suspect]
     Active Substance: OXYCODONE
     Dosage: 30 UNK, MAYBE 2-3 TIMES A DAY.
  2. GABAPENTIN. [Suspect]
     Active Substance: GABAPENTIN
     Indication: NEURALGIA
     Dosage: 1800 MG, DAILY
     Dates: start: 201212, end: 201503
  3. OXYCODONE [Suspect]
     Active Substance: OXYCODONE
     Indication: NEURALGIA
     Dosage: 180 MG, DAILY (30MG SIX TIMES A DAY)
     Dates: start: 201205

REACTIONS (3)
  - Screaming [Unknown]
  - Drug ineffective for unapproved indication [Unknown]
  - Paraesthesia [Unknown]
